FAERS Safety Report 8811642 (Version 1)
Quarter: 2012Q4

REPORT INFORMATION
  Report Type: 
  Country: ES (occurrence: ES)
  Receive Date: 20120927
  Receipt Date: 20120927
  Transmission Date: 20130627
  Serious: Yes (Hospitalization, Other)
  Sender: FDA-Public Use
  Company Number: ES-PFIZER INC-2012234644

PATIENT
  Age: 19 Year
  Sex: Male

DRUGS (4)
  1. RIFAMPIN [Suspect]
     Indication: LYMPH NODE TUBERCULOSIS
     Dosage: UNK
  2. ETHAMBUTOL [Suspect]
     Indication: LYMPH NODE TUBERCULOSIS
     Dosage: UNK
  3. ISONIAZID [Suspect]
     Indication: LYMPH NODE TUBERCULOSIS
     Dosage: UNK
  4. PYRAZINAMIDE [Suspect]
     Indication: LYMPH NODE TUBERCULOSIS
     Dosage: UNK

REACTIONS (1)
  - Drug reaction with eosinophilia and systemic symptoms [Recovering/Resolving]
